FAERS Safety Report 4933018-0 (Version None)
Quarter: 2006Q1

REPORT INFORMATION
  Report Type: 
  Country: None (occurrence: None)
  Receive Date: 20060306
  Receipt Date: 20040930
  Transmission Date: 20060701
  Serious: Yes (Other)
  Sender: FDA-Public Use
  Company Number: DE-BRISTOL-MYERS SQUIBB COMPANY-13298609

PATIENT
  Age: 27 Year
  Sex: Female

DRUGS (7)
  1. SUSTIVA [Suspect]
     Indication: HIV INFECTION
     Dates: start: 20040401
  2. COMBIVIR [Concomitant]
     Indication: HIV INFECTION
     Dosage: DISCONTINUED JAN-2004, RESTARTED ON UNKNOWN DATE AND DISCONTINUED AGAIN IN APR-2004.
     Dates: start: 20031207
  3. KALETRA [Concomitant]
     Indication: HIV INFECTION
     Dosage: DOSAGE FORM-TABLETS.DISCONTINUED JAN-2004, RESTARTED ON UNK DATE AND DISCONTINUED AGAIN IN APR-2004.
     Dates: start: 20031207
  4. COTRIM DS [Concomitant]
     Dosage: DOSAGE FORM-TABLET
     Dates: start: 20031207
  5. RIFABUTIN [Concomitant]
     Indication: TUBERCULOSIS
     Dosage: 600 MG ON 07-JAN-2004, DISCONTINUED APR-2004, RESTARTED ON UNK DATE AT 300 MG DAILY.
  6. ETHAMBUTOL [Concomitant]
     Indication: TUBERCULOSIS
     Dosage: DISCONTINUED APR-2004, RESTARTED ON UNK DATE.
     Dates: start: 20040107
  7. PYRAZINAMIDE [Concomitant]
     Indication: TUBERCULOSIS
     Dosage: DISCONTINUED APR-2004, RESTARTED ON UNK DATE.
     Dates: start: 20040107

REACTIONS (1)
  - MYCOBACTERIUM AVIUM COMPLEX INFECTION [None]
